FAERS Safety Report 12212366 (Version 3)
Quarter: 2016Q4

REPORT INFORMATION
  Report Type: Spontaneous
  Country: JP (occurrence: JP)
  Receive Date: 20160325
  Receipt Date: 20161010
  Transmission Date: 20170207
  Serious: Yes (Death, Other)
  Sender: FDA-Public Use
  Company Number: PHHY2016JP037463

PATIENT
  Age: 65 Year
  Sex: Male
  Weight: 67.8 kg

DRUGS (13)
  1. BACTRAMIN [Concomitant]
     Active Substance: SULFAMETHOXAZOLE\TRIMETHOPRIM
     Indication: PROPHYLAXIS
     Dosage: 1 DF, QD
     Route: 048
     Dates: start: 20120209, end: 20130308
  2. GASTER [Concomitant]
     Active Substance: FAMOTIDINE
     Indication: PROPHYLAXIS
     Dosage: 10 MG, BID
     Route: 048
     Dates: start: 20120322, end: 20130308
  3. NEORAL [Suspect]
     Active Substance: CYCLOSPORINE
     Indication: ACQUIRED HAEMOPHILIA WITH ANTI FVIII, XI, OR XIII
     Dosage: 160-300 MG, QD
     Route: 048
     Dates: start: 20131025, end: 20150608
  4. FIBROGAMMIN [Concomitant]
     Active Substance: FACTOR XIII CONCENTRATE (HUMAN)
     Dosage: 60 OT, UNK
     Route: 065
  5. GASTER [Concomitant]
     Active Substance: FAMOTIDINE
     Dosage: 10 MG, BID
     Route: 048
     Dates: start: 20131025
  6. BACTRAMIN [Concomitant]
     Active Substance: SULFAMETHOXAZOLE\TRIMETHOPRIM
     Dosage: 1 DF, QD
     Route: 048
     Dates: start: 20131025
  7. CYCLOPHOSPHAMIDE. [Suspect]
     Active Substance: CYCLOPHOSPHAMIDE
     Indication: ACQUIRED ANTITHROMBIN III DEFICIENCY
     Dosage: 50 MG, QD
     Route: 065
  8. RITUXIMAB [Suspect]
     Active Substance: RITUXIMAB
     Indication: ACQUIRED ANTITHROMBIN III DEFICIENCY
     Dosage: UNK UNK, QW4
     Route: 065
  9. NEORAL [Suspect]
     Active Substance: CYCLOSPORINE
     Indication: ACQUIRED ANTITHROMBIN III DEFICIENCY
     Dosage: 120 MG, BID
     Route: 048
     Dates: start: 20120224, end: 20130308
  10. FIBROGAMMIN [Concomitant]
     Active Substance: FACTOR XIII CONCENTRATE (HUMAN)
     Indication: ACQUIRED ANTITHROMBIN III DEFICIENCY
     Dosage: UNK
     Route: 065
  11. FIBROGAMMIN [Concomitant]
     Active Substance: FACTOR XIII CONCENTRATE (HUMAN)
     Dosage: 1200 U, UNK
     Route: 065
  12. FIBROGAMMIN [Concomitant]
     Active Substance: FACTOR XIII CONCENTRATE (HUMAN)
     Dosage: 50 U/KG, UNK
     Route: 065
  13. PREDNISOLONE. [Suspect]
     Active Substance: PREDNISOLONE
     Indication: ACQUIRED ANTITHROMBIN III DEFICIENCY
     Dosage: 1 MG/KG, UNK
     Route: 065

REACTIONS (2)
  - Oesophageal squamous cell carcinoma recurrent [Fatal]
  - Oesophageal squamous cell carcinoma stage II [Recovered/Resolved]

NARRATIVE: CASE EVENT DATE: 20131102
